FAERS Safety Report 24626012 (Version 1)
Quarter: 2024Q4

REPORT INFORMATION
  Report Type: Spontaneous
  Country: DE (occurrence: DE)
  Receive Date: 20241115
  Receipt Date: 20241115
  Transmission Date: 20250114
  Serious: Yes (Hospitalization, Other)
  Sender: TEVA
  Company Number: None

PATIENT
  Sex: Female

DRUGS (20)
  1. DOXORUBICIN [Suspect]
     Active Substance: DOXORUBICIN
     Indication: B-cell lymphoma
     Dosage: DAILY DOSE: 50 MG/M2 MILLIGRAM(S)/SQ. METER EVERY 2 WEEK
     Route: 042
     Dates: start: 20160406, end: 20160519
  2. PANTOPRAZOLE SODIUM [Concomitant]
     Active Substance: PANTOPRAZOLE SODIUM
     Indication: Prophylaxis
     Dosage: DAILY DOSE: 40 MG MILLIGRAM(S) EVERY DAY
     Route: 048
  3. FLUVASTATIN [Concomitant]
     Active Substance: FLUVASTATIN SODIUM
     Indication: Hypercholesterolaemia
     Dosage: 40 MG, (1 TIMES A DAY (S))
     Route: 048
  4. LACTULOSE [Concomitant]
     Active Substance: LACTULOSE
     Indication: Constipation
     Dosage: DAILY DOSE: 15 ML MILLILITRE(S) EVERY DAY
     Route: 048
     Dates: start: 20160418, end: 20160418
  5. RITUXIMAB [Suspect]
     Active Substance: RITUXIMAB
     Indication: B-cell lymphoma
     Dosage: DAILY DOSE: 375 MG/M2 MILLIGRAM(S)/SQ. METER EVERY 2 WEEK
     Route: 042
     Dates: start: 20160405, end: 20160518
  6. LEVOTHYROXINE [Concomitant]
     Active Substance: LEVOTHYROXINE
     Indication: Hypothyroidism
     Dosage: DAILY DOSE: 75 MG MILLIGRAM(S) EVERY DAY
     Route: 048
  7. LEVOTHYROXINE [Concomitant]
     Active Substance: LEVOTHYROXINE
     Indication: Hypothyroidism
     Dosage: DAILY DOSE: 75 ?G MICROGRAM(S) EVERY DAY, LEVOTHYROXINE SODIUM?ADR 1006913
     Route: 048
  8. VINCRISTINE [Suspect]
     Active Substance: VINCRISTINE
     Indication: B-cell lymphoma
     Dosage: DAILY DOSE: 1 MG/M2 MILLIGRAM(S)/SQ. METER EVERY 2 WEEK
     Route: 042
     Dates: start: 20160406, end: 20160519
  9. PREDNISONE [Suspect]
     Active Substance: PREDNISONE
     Indication: B-cell lymphoma
     Dosage: 100 MG, UNK (DAY0-5 FOR 45 DAYS)
     Route: 048
     Dates: start: 20160405, end: 20160519
  10. CHOLECALCIFEROL [Concomitant]
     Active Substance: CHOLECALCIFEROL
     Indication: Vitamin D deficiency
     Dosage: QD, DEPENDENT ON THE BLOOD TEST
     Route: 048
     Dates: start: 20160416, end: 20160418
  11. CHOLECALCIFEROL [Concomitant]
     Active Substance: CHOLECALCIFEROL
     Indication: Vitamin D deficiency
     Dosage: UNK (DEPENDANT ON BLOOD TEST)
     Route: 048
     Dates: start: 20160415
  12. CANDESARTAN [Concomitant]
     Active Substance: CANDESARTAN
     Indication: Hypertension
     Dosage: UNK UNK, QD (16/12,5, 1-0-0)
     Route: 048
  13. SIMVASTATIN [Concomitant]
     Active Substance: SIMVASTATIN
     Indication: Hypercholesterolaemia
     Dosage: 10 MG, UNK
     Route: 048
  14. CYCLOPHOSPHAMIDE [Suspect]
     Active Substance: CYCLOPHOSPHAMIDE
     Indication: B-cell lymphoma
     Dosage: DAILY DOSE: 375 MG/M2 MILLIGRAM(S)/SQ. METER EVERY 2 WEEK
     Route: 042
     Dates: start: 20160405, end: 20160518
  15. CYCLOPHOSPHAMIDE [Suspect]
     Active Substance: CYCLOPHOSPHAMIDE
     Indication: B-cell lymphoma
     Dosage: DAILY DOSE: 750 MG/M2 MILLIGRAM(S)/SQ. METER EVERY 2 WEEK
     Route: 042
     Dates: start: 20160406, end: 20160519
  16. TRIMETHOPRIM SULFAMETHOXAZOL [Concomitant]
     Indication: Prophylaxis
     Dosage: 160 MG, (MONDAY + FRIADAY)
     Route: 048
     Dates: start: 20160406
  17. RAMIPRIL [Concomitant]
     Active Substance: RAMIPRIL
     Indication: Hypertension
     Dosage: DAILY DOSE: 10 MG MILLIGRAM(S) EVERY DAY
     Route: 048
  18. ACYCLOVIR [Concomitant]
     Active Substance: ACYCLOVIR
     Indication: Prophylaxis
     Dosage: 400 MG, UNK (4 TIMES A DAY (S))
     Route: 048
     Dates: start: 20160406
  19. PREDNISOLONE [Suspect]
     Active Substance: PREDNISOLONE
     Indication: Product used for unknown indication
     Dosage: UNK
     Route: 042
     Dates: start: 20160419
  20. PEGFILGRASTIM [Suspect]
     Active Substance: PEGFILGRASTIM
     Indication: B-cell lymphoma
     Dosage: DAILY DOSE: 6 MG MILLIGRAM(S) EVERY 2 WEEK
     Route: 058
     Dates: start: 20160410, end: 20160522

REACTIONS (7)
  - Vomiting [Unknown]
  - Constipation [Recovered/Resolved]
  - Pain [Recovered/Resolved]
  - Pain in extremity [Recovered/Resolved]
  - Haemolysis [Unknown]
  - Abdominal pain [Unknown]
  - Constipation [Recovered/Resolved]

NARRATIVE: CASE EVENT DATE: 20160418
